FAERS Safety Report 9792048 (Version 1)
Quarter: 2014Q1

REPORT INFORMATION
  Report Type: Spontaneous
  Country: US (occurrence: US)
  Receive Date: 20140102
  Receipt Date: 20140102
  Transmission Date: 20141002
  Serious: No
  Sender: FDA-Public Use
  Company Number: US-009507513-1401USA000186

PATIENT
  Age: 87 Year
  Sex: Male

DRUGS (3)
  1. SINEMET [Suspect]
     Indication: PARKINSON^S DISEASE
     Dosage: 25-100 MG, TID
     Route: 048
     Dates: start: 201309
  2. ATENOLOL [Concomitant]
  3. COUMADIN [Concomitant]

REACTIONS (3)
  - Haematuria [Not Recovered/Not Resolved]
  - Chromaturia [Not Recovered/Not Resolved]
  - Drug administration error [Unknown]
